FAERS Safety Report 18777846 (Version 2)
Quarter: 2021Q4

REPORT INFORMATION
  Report Type: Spontaneous
  Country: US (occurrence: US)
  Receive Date: 20210122
  Receipt Date: 20211102
  Transmission Date: 20220303
  Serious: No
  Sender: FDA-Public Use
  Company Number: US-SEATTLE GENETICS-2020SGN03948

PATIENT
  Sex: Female

DRUGS (6)
  1. TUKYSA [Suspect]
     Active Substance: TUCATINIB
     Indication: Breast cancer female
     Dosage: UNK, BID
  2. TUKYSA [Suspect]
     Active Substance: TUCATINIB
     Dosage: UNK
  3. TUKYSA [Suspect]
     Active Substance: TUCATINIB
     Dosage: UNK
  4. TUKYSA [Suspect]
     Active Substance: TUCATINIB
     Dosage: UNK
  5. TUKYSA [Suspect]
     Active Substance: TUCATINIB
     Dosage: UNK
  6. XELODA [Concomitant]
     Active Substance: CAPECITABINE
     Dosage: UNK, BID

REACTIONS (7)
  - Muscle spasms [Unknown]
  - Sensitive skin [Unknown]
  - Ultrasound scan abnormal [Unknown]
  - Positron emission tomogram abnormal [Unknown]
  - Product dose omission issue [Unknown]
  - Peripheral swelling [Unknown]
  - Diarrhoea [Unknown]
